FAERS Safety Report 6348725-5 (Version None)
Quarter: 2009Q3

REPORT INFORMATION
  Report Type: 
  Country: None (occurrence: None)
  Receive Date: 20090911
  Receipt Date: 20090903
  Transmission Date: 20100115
  Serious: Yes (Other)
  Sender: FDA-Public Use
  Company Number: PHHO2007AU20771

PATIENT
  Sex: Female
  Weight: 70 kg

DRUGS (3)
  1. RAD 666 RAD+TAB [Suspect]
     Indication: RENAL TRANSPLANT
     Dosage: 2 MG, BID
     Route: 048
     Dates: start: 20060308, end: 20071202
  2. RAD 666 RAD+TAB [Suspect]
     Dosage: UNK
     Dates: start: 20071219
  3. TACROLIMUS [Concomitant]
     Indication: RENAL TRANSPLANT

REACTIONS (1)
  - AMENORRHOEA [None]
